FAERS Safety Report 15042600 (Version 1)
Quarter: 2018Q2

REPORT INFORMATION
  Report Type: Spontaneous
  Country: US (occurrence: US)
  Receive Date: 20180531
  Receipt Date: 20180531
  Transmission Date: 20180711
  Serious: Yes (Death)
  Sender: FDA-Public Use
  Company Number: None

PATIENT
  Age: 64 Year
  Sex: Male

DRUGS (2)
  1. NEULASTA [Suspect]
     Active Substance: PEGFILGRASTIM
     Dates: start: 20170728, end: 20171010
  2. GLEEVEC [Suspect]
     Active Substance: IMATINIB MESYLATE
     Dates: start: 20160705, end: 20180404

REACTIONS (1)
  - Death [None]

NARRATIVE: CASE EVENT DATE: 20180404
